FAERS Safety Report 22665617 (Version 5)
Quarter: 2024Q1

REPORT INFORMATION
  Report Type: Report from Study
  Country: BR (occurrence: BR)
  Receive Date: 20230703
  Receipt Date: 20240122
  Transmission Date: 20240409
  Serious: Yes (Other)
  Sender: FDA-Public Use
  Company Number: BR-AMGEN-BRASL2023111882

PATIENT
  Age: 52 Year
  Sex: Female

DRUGS (7)
  1. EVENITY [Suspect]
     Active Substance: ROMOSOZUMAB-AQQG
     Indication: Osteoporosis
     Dosage: UNK UNK, QMO (30 IN 30 DAYS)
     Route: 065
     Dates: start: 20230306, end: 20231127
  2. PURAN [Concomitant]
     Active Substance: LEVOTHYROXINE SODIUM
     Indication: Hypothyroidism
     Dosage: 62.5 MILLIGRAM
  3. MENAQUINONE 6 [Concomitant]
     Active Substance: MENAQUINONE 6
     Dosage: UNK
  4. ALPRAZOLAM [Concomitant]
     Active Substance: ALPRAZOLAM
     Indication: Sleep disorder
     Dosage: 1 MILLIGRAM, HALF A TABLET AT NIGHT
  5. PREGABALIN [Concomitant]
     Active Substance: PREGABALIN
     Dosage: 75 MILLIGRAM ( HALF TABLET AT NIGHT )
  6. Osteotrat [Concomitant]
     Dosage: (2X A DAY)
  7. VITAMIN D [Concomitant]
     Active Substance: VITAMIN D NOS
     Dosage: 10000UI, 2X PER WEEK

REACTIONS (14)
  - Retinal artery occlusion [Unknown]
  - Fatigue [Recovering/Resolving]
  - Malaise [Recovering/Resolving]
  - Tachycardia [Not Recovered/Not Resolved]
  - Chills [Not Recovered/Not Resolved]
  - Aphonia [Recovering/Resolving]
  - Palpitations [Not Recovered/Not Resolved]
  - Pain in jaw [Not Recovered/Not Resolved]
  - Dyspnoea [Recovered/Resolved]
  - Hypoaesthesia [Not Recovered/Not Resolved]
  - Cough [Recovering/Resolving]
  - Headache [Not Recovered/Not Resolved]
  - Gait disturbance [Recovering/Resolving]
  - Dizziness [Recovered/Resolved]

NARRATIVE: CASE EVENT DATE: 20230101
